FAERS Safety Report 9779538 (Version 2)
Quarter: 2014Q1

REPORT INFORMATION
  Report Type: Spontaneous
  Country: US (occurrence: US)
  Receive Date: 20131223
  Receipt Date: 20140128
  Transmission Date: 20141002
  Serious: No
  Sender: FDA-Public Use
  Company Number: US-PFIZER INC-2013364185

PATIENT
  Age: 53 Year
  Sex: Male
  Weight: 88.44 kg

DRUGS (3)
  1. CELEBREX [Suspect]
     Indication: INFLAMMATORY PAIN
     Dosage: 200 MG, 1X/DAY
     Dates: start: 20131129, end: 20131206
  2. CELEBREX [Suspect]
     Indication: PAIN
     Dosage: 200 MG, DAILY
     Route: 048
     Dates: start: 20131215, end: 20131218
  3. NEXIUM [Concomitant]
     Dosage: 5 MG, 1X/DAY

REACTIONS (4)
  - Rash [Recovered/Resolved]
  - Erythema [Recovering/Resolving]
  - Swelling face [Recovering/Resolving]
  - Skin discolouration [Not Recovered/Not Resolved]
